FAERS Safety Report 10297776 (Version 3)
Quarter: 2015Q4

REPORT INFORMATION
  Report Type: Report from Study
  Country: JP (occurrence: JP)
  Receive Date: 20140711
  Receipt Date: 20151210
  Transmission Date: 20160304
  Serious: Yes (Death, Other)
  Sender: FDA-Public Use
  Company Number: JP-ALEXION PHARMACEUTICALS INC.-A201402672

PATIENT
  Age: 33 Year
  Sex: Male
  Weight: 60 kg

DRUGS (4)
  1. SOLU-MEDROL [Concomitant]
     Active Substance: METHYLPREDNISOLONE SODIUM SUCCINATE
     Indication: HAEMOLYTIC URAEMIC SYNDROME
     Dosage: 40 MG, BID
     Route: 041
     Dates: start: 20140622, end: 20140627
  2. NICARDIPINE [Concomitant]
     Active Substance: NICARDIPINE
     Indication: HAEMOLYTIC URAEMIC SYNDROME
     Dosage: APPROPRIATELY ADJUSTMENT
     Route: 042
     Dates: start: 20140626, end: 20140627
  3. ALEVIATIN                          /00017401/ [Concomitant]
     Active Substance: PHENYTOIN SODIUM
     Indication: HAEMOLYTIC URAEMIC SYNDROME
     Dosage: 250 MG, BID
     Route: 041
     Dates: start: 20140609, end: 20140627
  4. SOLIRIS [Suspect]
     Active Substance: ECULIZUMAB
     Indication: HAEMOLYTIC URAEMIC SYNDROME
     Dosage: 900 MG, QW
     Route: 042
     Dates: start: 20140623, end: 20140623

REACTIONS (1)
  - Secondary hypertension [Fatal]

NARRATIVE: CASE EVENT DATE: 20140624
